FAERS Safety Report 8889255 (Version 1)
Quarter: 2012Q4

REPORT INFORMATION
  Report Type: Report from Study
  Country: US (occurrence: US)
  Receive Date: 20121106
  Receipt Date: 20121106
  Transmission Date: 20130627
  Serious: Yes (Hospitalization)
  Sender: FDA-Public Use
  Company Number: US-JNJFOC-20121017506

PATIENT
  Age: 60 None
  Sex: Female
  Weight: 97.52 kg

DRUGS (11)
  1. REMICADE [Suspect]
     Indication: CROHN^S DISEASE
     Route: 042
     Dates: start: 20120905
  2. REMICADE [Suspect]
     Indication: CROHN^S DISEASE
     Route: 042
     Dates: start: 201207
  3. REMICADE [Suspect]
     Indication: CROHN^S DISEASE
     Route: 042
     Dates: start: 200806
  4. BENADRYL [Concomitant]
     Indication: PREMEDICATION
     Route: 065
  5. DIOVAN [Concomitant]
     Route: 048
  6. NEXIUM [Concomitant]
     Route: 048
  7. VITAMIN D [Concomitant]
     Route: 048
  8. VITAMIN D [Concomitant]
     Route: 048
  9. LORTAB [Concomitant]
     Route: 048
  10. CLARITIN [Concomitant]
     Route: 065
  11. TYLENOL [Concomitant]
     Indication: PREMEDICATION
     Route: 065

REACTIONS (3)
  - Crohn^s disease [Not Recovered/Not Resolved]
  - Chest pain [Not Recovered/Not Resolved]
  - Drug dose omission [Not Recovered/Not Resolved]
